FAERS Safety Report 18349709 (Version 1)
Quarter: 2020Q4

REPORT INFORMATION
  Report Type: Spontaneous
  Country: CN (occurrence: CN)
  Receive Date: 20201006
  Receipt Date: 20201006
  Transmission Date: 20210114
  Serious: Yes (Death, Other)
  Sender: FDA-Public Use
  Company Number: CN-JNJFOC-20200932987

PATIENT

DRUGS (1)
  1. BOSENTAN. [Suspect]
     Active Substance: BOSENTAN
     Indication: PULMONARY ARTERIAL HYPERTENSION
     Dosage: 62.5 MG/DOSE BID FOR CHILDREN PATIENTS WITH BODY MASS OF 20-40 KG; 125 MG/DOSE BID CHILDREN PATIENTS
     Route: 048
     Dates: start: 201306, end: 201606

REACTIONS (4)
  - Product use issue [Unknown]
  - Off label use [Unknown]
  - Lung transplant [Unknown]
  - Death [Fatal]
